FAERS Safety Report 20532810 (Version 1)
Quarter: 2022Q1

REPORT INFORMATION
  Report Type: Spontaneous
  Country: US (occurrence: US)
  Receive Date: 20220301
  Receipt Date: 20220301
  Transmission Date: 20220424
  Serious: No
  Sender: FDA-Public Use
  Company Number: US-PFIZER INC-202101063470

PATIENT
  Age: 79 Year
  Sex: Female

DRUGS (1)
  1. VFEND [Suspect]
     Active Substance: VORICONAZOLE
     Dosage: 200 MG, 2X/DAY (30-DAY SUPPLY, TAKE 1 TAB BY MOUTH EVERY 12 HRS)
     Route: 048

REACTIONS (1)
  - Dyspnoea [Unknown]
